FAERS Safety Report 23813093 (Version 1)
Quarter: 2024Q2

REPORT INFORMATION
  Report Type: Spontaneous
  Country: US (occurrence: US)
  Receive Date: 20240503
  Receipt Date: 20240503
  Transmission Date: 20240716
  Serious: No
  Sender: FDA-Public Use
  Company Number: US-AMNEAL PHARMACEUTICALS-2023-AMRX-02996

PATIENT
  Sex: Male
  Weight: 20 kg

DRUGS (7)
  1. VIGABATRIN [Suspect]
     Active Substance: VIGABATRIN
     Indication: Infantile spasms
     Dosage: WEEK 4 MIX 2 PACKETS IN 20 ML OF WATER AND GIVE/TAKE 16 ML (800 MG) TWICE A DAY. WEEK 5 MIX 2 PACKET
     Route: 065
  2. VIGABATRIN [Suspect]
     Active Substance: VIGABATRIN
     Indication: Seizure
  3. ALBUTEROL SULFATE [Concomitant]
     Active Substance: ALBUTEROL SULFATE
     Indication: Product used for unknown indication
     Route: 065
  4. ZYRTEC-D [Concomitant]
     Active Substance: CETIRIZINE HYDROCHLORIDE\PSEUDOEPHEDRINE HYDROCHLORIDE
     Indication: Product used for unknown indication
     Route: 065
  5. OMEPRAZOLE [Concomitant]
     Active Substance: OMEPRAZOLE
     Indication: Product used for unknown indication
     Route: 065
  6. CLOBAZAM [Concomitant]
     Active Substance: CLOBAZAM
     Indication: Product used for unknown indication
     Route: 065
  7. FYCOMPA [Concomitant]
     Active Substance: PERAMPANEL
     Indication: Product used for unknown indication
     Route: 065

REACTIONS (2)
  - Illness [Unknown]
  - Pyrexia [Unknown]
